FAERS Safety Report 11137707 (Version 3)
Quarter: 2015Q3

REPORT INFORMATION
  Report Type: Spontaneous
  Country: US (occurrence: US)
  Receive Date: 20150526
  Receipt Date: 20150714
  Transmission Date: 20151125
  Serious: No
  Sender: FDA-Public Use
  Company Number: US-PFIZER INC-2015175013

PATIENT
  Age: 43 Year
  Sex: Female
  Weight: 82 kg

DRUGS (2)
  1. NALTREXONE [Suspect]
     Active Substance: NALTREXONE
     Dosage: UNK, 2X/WEEK
  2. NEURONTIN [Suspect]
     Active Substance: GABAPENTIN
     Dosage: UNK, 2X/WEEK

REACTIONS (3)
  - Activities of daily living impaired [Unknown]
  - Fibromyalgia [Not Recovered/Not Resolved]
  - Disease progression [Not Recovered/Not Resolved]
